FAERS Safety Report 13577210 (Version 5)
Quarter: 2017Q4

REPORT INFORMATION
  Report Type: Spontaneous
  Country: IT (occurrence: IT)
  Receive Date: 20170524
  Receipt Date: 20171211
  Transmission Date: 20180320
  Serious: Yes (Life-Threatening)
  Sender: FDA-Public Use
  Company Number: IT-PFIZER INC-2017228181

PATIENT
  Age: 71 Year
  Sex: Female

DRUGS (6)
  1. SIRTAP [Suspect]
     Active Substance: CEFTRIAXONE SODIUM
     Indication: ANTIBIOTIC PROPHYLAXIS
     Dosage: 2 G, SINGLE
     Route: 042
     Dates: start: 20170518, end: 20170518
  2. ROCEFIN [Concomitant]
     Active Substance: CEFTRIAXONE SODIUM
     Dosage: UNK
     Route: 030
  3. FENTANEST [Suspect]
     Active Substance: FENTANYL CITRATE
     Indication: GENERAL ANAESTHESIA
     Dosage: 100 UG, SINGLE
     Route: 042
     Dates: start: 20170518, end: 20170518
  4. ESMERON [Suspect]
     Active Substance: ROCURONIUM BROMIDE
     Indication: GENERAL ANAESTHESIA
     Dosage: 40 MG, SINGLE
     Route: 042
     Dates: start: 20170518, end: 20170518
  5. DIPRIVAN [Suspect]
     Active Substance: PROPOFOL
     Dosage: 18 ML/H FOR ABOUT 1 HOUR
     Route: 042
     Dates: start: 20170518, end: 20170518
  6. DIPRIVAN [Suspect]
     Active Substance: PROPOFOL
     Indication: GENERAL ANAESTHESIA
     Dosage: 150 MG, SINGLE
     Route: 042
     Dates: start: 20170518, end: 20170518

REACTIONS (6)
  - Oxygen saturation decreased [Recovered/Resolved]
  - Tachycardia [Recovered/Resolved with Sequelae]
  - Bronchospasm [Recovered/Resolved with Sequelae]
  - Blood pressure decreased [Recovered/Resolved]
  - Anaphylactic shock [Recovered/Resolved with Sequelae]
  - Rash [Recovered/Resolved with Sequelae]

NARRATIVE: CASE EVENT DATE: 20170518
